FAERS Safety Report 17656059 (Version 1)
Quarter: 2020Q2

REPORT INFORMATION
  Report Type: Spontaneous
  Country: US (occurrence: US)
  Receive Date: 20200410
  Receipt Date: 20200410
  Transmission Date: 20200713
  Serious: Yes (Disabling, Other)
  Sender: FDA-Public Use
  Company Number: None

PATIENT
  Age: 64 Year
  Sex: Female
  Weight: 47.25 kg

DRUGS (5)
  1. MULTIVITAMIN [Concomitant]
     Active Substance: VITAMINS
  2. QNASL [Suspect]
     Active Substance: BECLOMETHASONE DIPROPIONATE
     Indication: SINUSITIS
     Dosage: ?          OTHER STRENGTH:MCG;QUANTITY:2 SPRAY(S);OTHER ROUTE:2 SPRAYS PER NOSTRIL?
     Dates: start: 20160901, end: 20200322
  3. QNASL [Suspect]
     Active Substance: BECLOMETHASONE DIPROPIONATE
     Indication: HYPERSENSITIVITY
     Dosage: ?          OTHER STRENGTH:MCG;QUANTITY:2 SPRAY(S);OTHER ROUTE:2 SPRAYS PER NOSTRIL?
     Dates: start: 20160901, end: 20200322
  4. CALCIUM [Suspect]
     Active Substance: CALCIUM
  5. LOW DOSE ASPIRIN [Concomitant]
     Active Substance: ASPIRIN

REACTIONS (1)
  - Muscle spasms [None]
